FAERS Safety Report 12587743 (Version 3)
Quarter: 2017Q1

REPORT INFORMATION
  Report Type: Spontaneous
  Country: US (occurrence: US)
  Receive Date: 20160725
  Receipt Date: 20170227
  Transmission Date: 20170428
  Serious: No
  Sender: FDA-Public Use
  Company Number: US-ASTRAZENECA-2016SE57797

PATIENT
  Age: 25717 Day
  Sex: Female
  Weight: 75.3 kg

DRUGS (1)
  1. BYDUREON [Suspect]
     Active Substance: EXENATIDE
     Indication: TYPE 2 DIABETES MELLITUS
     Route: 058

REACTIONS (3)
  - Incorrect dose administered [Unknown]
  - Alopecia [Unknown]
  - Device malfunction [Unknown]

NARRATIVE: CASE EVENT DATE: 20160525
